FAERS Safety Report 9308890 (Version 2)
Quarter: 2013Q4

REPORT INFORMATION
  Report Type: Spontaneous
  Country: GB (occurrence: GB)
  Receive Date: 20130524
  Receipt Date: 20131024
  Transmission Date: 20140711
  Serious: Yes (Disabling, Other)
  Sender: FDA-Public Use
  Company Number: PHHY2013GB050647

PATIENT
  Age: 61 Year
  Sex: Female
  Weight: 53.52 kg

DRUGS (14)
  1. LEVOFLOXACIN [Suspect]
     Indication: MALAISE
     Dosage: 500 MG, BID
     Route: 048
     Dates: start: 20130423, end: 20130502
  2. LEVOFLOXACIN [Suspect]
     Indication: MALAISE
  3. AMLODIPINE [Concomitant]
  4. RAMIPRIL [Concomitant]
  5. DIAZEPAM [Concomitant]
  6. MELOXICAM [Concomitant]
  7. OXYCODONE [Concomitant]
  8. PREMARIN [Concomitant]
  9. SALMETEROL/FLUTICASONPROPIONAAT [Concomitant]
     Route: 055
  10. TIOTROPIUM [Concomitant]
     Route: 055
  11. TIOTROPIUM [Concomitant]
     Route: 055
  12. METOCLOPRAMIDE [Concomitant]
  13. FLIXOTIDE [Concomitant]
  14. PREDNISOLONE [Concomitant]

REACTIONS (10)
  - Photophobia [Not Recovered/Not Resolved]
  - Joint swelling [Not Recovered/Not Resolved]
  - Hypoaesthesia [Not Recovered/Not Resolved]
  - Tendon injury [Not Recovered/Not Resolved]
  - Pain in extremity [Not Recovered/Not Resolved]
  - Arthralgia [Not Recovered/Not Resolved]
  - Tendon pain [Not Recovered/Not Resolved]
  - Tremor [Not Recovered/Not Resolved]
  - Asthenia [Not Recovered/Not Resolved]
  - Dyspnoea [Not Recovered/Not Resolved]
